FAERS Safety Report 7504708-0 (Version None)
Quarter: 2011Q2

REPORT INFORMATION
  Report Type: 
  Country: None (occurrence: None)
  Receive Date: 20110525
  Receipt Date: 20110518
  Transmission Date: 20111010
  Serious: Yes (Hospitalization)
  Sender: FDA-Public Use
  Company Number: FR-MERCK-1105USA03448

PATIENT
  Age: 52 Year
  Sex: Male

DRUGS (6)
  1. AERIUS [Concomitant]
     Route: 065
  2. BIPERIDYS [Concomitant]
     Route: 065
  3. BISOPROLOL FUMARATE [Concomitant]
     Indication: CYSTITIS
     Route: 065
     Dates: start: 20101201
  4. DIFFU-K [Concomitant]
     Route: 065
  5. MUCOMYST [Concomitant]
     Route: 065
  6. PRIMAXIN [Suspect]
     Indication: CYSTITIS
     Route: 042
     Dates: start: 20101201, end: 20110122

REACTIONS (6)
  - EXFOLIATIVE RASH [None]
  - XEROSIS [None]
  - RENAL FAILURE ACUTE [None]
  - FEBRILE NEUTROPENIA [None]
  - HYPERKERATOSIS [None]
  - RASH ERYTHEMATOUS [None]
